FAERS Safety Report 20707719 (Version 2)
Quarter: 2023Q1

REPORT INFORMATION
  Report Type: Spontaneous
  Country: IT (occurrence: IT)
  Receive Date: 20220413
  Receipt Date: 20230113
  Transmission Date: 20230418
  Serious: Yes (Hospitalization)
  Sender: FDA-Public Use
  Company Number: IT-STRIDES ARCOLAB LIMITED-2022SP003858

PATIENT
  Age: 2 Year
  Sex: Male

DRUGS (15)
  1. MYCOPHENOLATE MOFETIL [Suspect]
     Active Substance: MYCOPHENOLATE MOFETIL
     Indication: Immunosuppressant drug therapy
     Dosage: UNK
     Route: 065
  2. MYCOPHENOLATE MOFETIL [Suspect]
     Active Substance: MYCOPHENOLATE MOFETIL
     Indication: Graft versus host disease in gastrointestinal tract
  3. PREDNISOLONE [Suspect]
     Active Substance: PREDNISOLONE
     Indication: Prophylaxis against graft versus host disease
     Dosage: 1 MILLIGRAM/KILOGRAM PER DAY
     Route: 065
  4. FLUDARABINE [Suspect]
     Active Substance: FLUDARABINE PHOSPHATE
     Indication: Stem cell transplant
     Dosage: 30 MILLIGRAM/SQ. METER PER DAY FOR 5 DAYS
     Route: 065
  5. TREOSULFAN [Suspect]
     Active Substance: TREOSULFAN
     Indication: Stem cell transplant
     Dosage: 12 GRAM PER SQUARE METRE, PER DAY (FROM DAY 5-7)
     Route: 065
  6. CYCLOSPORINE [Suspect]
     Active Substance: CYCLOSPORINE
     Indication: Prophylaxis against graft versus host disease
     Dosage: 2 MILLIGRAM/KILOGRAM PER DAY
     Route: 042
  7. METHYLPREDNISOLONE [Suspect]
     Active Substance: METHYLPREDNISOLONE
     Indication: Immunosuppressant drug therapy
     Dosage: 2 MILLIGRAM/KILOGRAM
     Route: 065
  8. METHYLPREDNISOLONE [Suspect]
     Active Substance: METHYLPREDNISOLONE
     Indication: Graft versus host disease in gastrointestinal tract
  9. BEGELOMAB [Suspect]
     Active Substance: BEGELOMAB
     Indication: Immunosuppressant drug therapy
     Dosage: UNK
     Route: 065
  10. BEGELOMAB [Suspect]
     Active Substance: BEGELOMAB
     Indication: Graft versus host disease in gastrointestinal tract
  11. USTEKINUMAB [Suspect]
     Active Substance: USTEKINUMAB
     Indication: Immunosuppressant drug therapy
     Dosage: UNK
     Route: 065
  12. USTEKINUMAB [Suspect]
     Active Substance: USTEKINUMAB
     Indication: Graft versus host disease in gastrointestinal tract
  13. RUXOLITINIB [Suspect]
     Active Substance: RUXOLITINIB
     Indication: Immunosuppressant drug therapy
     Dosage: UNK
     Route: 065
  14. RUXOLITINIB [Suspect]
     Active Substance: RUXOLITINIB
     Indication: Graft versus host disease in gastrointestinal tract
  15. THYMOCYTE IMMUNE GLOBULIN NOS [Concomitant]
     Active Substance: THYMOCYTE IMMUNE GLOBULIN NOS
     Indication: Stem cell transplant
     Dosage: 2.5 MILLIGRAM/KILOGRAM PER DAY (FROM DAY 8-10)
     Route: 065

REACTIONS (6)
  - Pneumatosis intestinalis [Recovered/Resolved]
  - Pancreatitis acute [Recovered/Resolved]
  - Graft versus host disease in skin [Unknown]
  - Sepsis [Unknown]
  - Bacterial translocation [Unknown]
  - Therapy non-responder [Unknown]
